FAERS Safety Report 6607769-6 (Version None)
Quarter: 2010Q1

REPORT INFORMATION
  Report Type: 
  Country: None (occurrence: None)
  Receive Date: 20100225
  Receipt Date: 20100225
  Transmission Date: 20100710
  Serious: No
  Sender: FDA-Public Use
  Company Number: None

PATIENT
  Sex: Male

DRUGS (1)
  1. ADDERALL XR 10 [Suspect]
     Indication: ATTENTION DEFICIT/HYPERACTIVITY DISORDER
     Dosage: 20 MG QD

REACTIONS (3)
  - ATTENTION DEFICIT/HYPERACTIVITY DISORDER [None]
  - PRODUCT SUBSTITUTION ISSUE [None]
  - THERAPEUTIC RESPONSE UNEXPECTED [None]
